FAERS Safety Report 16231190 (Version 1)
Quarter: 2019Q2

REPORT INFORMATION
  Report Type: Spontaneous
  Country: US (occurrence: US)
  Receive Date: 20190424
  Receipt Date: 20190424
  Transmission Date: 20190711
  Serious: No
  Sender: FDA-Public Use
  Company Number: US-GLAXOSMITHKLINE-US2019068832

PATIENT
  Age: 53 Year
  Sex: Female

DRUGS (1)
  1. ABREVA [Suspect]
     Active Substance: DOCOSANOL
     Indication: ORAL HERPES
     Dosage: UNK
     Dates: start: 20190409, end: 20190411

REACTIONS (5)
  - Condition aggravated [Unknown]
  - Lip swelling [Unknown]
  - Incorrect product administration duration [Unknown]
  - Oral herpes [Unknown]
  - Scab [Unknown]

NARRATIVE: CASE EVENT DATE: 20190411
